FAERS Safety Report 5142980-5 (Version None)
Quarter: 2006Q4

REPORT INFORMATION
  Report Type: 
  Country: None (occurrence: None)
  Receive Date: 20061103
  Receipt Date: 20061020
  Transmission Date: 20070319
  Serious: Yes (Hospitalization)
  Sender: FDA-Public Use
  Company Number: US-JNJFOC-20061005510

PATIENT
  Sex: Female
  Weight: 131.54 kg

DRUGS (4)
  1. DURAGESIC-100 [Suspect]
     Route: 062
  2. DURAGESIC-100 [Suspect]
     Route: 062
  3. DURAGESIC-100 [Suspect]
     Indication: PAIN
     Route: 062
  4. FENTANYL [Suspect]
     Indication: PAIN
     Route: 062

REACTIONS (3)
  - DIVERTICULITIS [None]
  - INTESTINAL OBSTRUCTION [None]
  - WEIGHT DECREASED [None]
